FAERS Safety Report 6132615-7 (Version None)
Quarter: 2009Q1

REPORT INFORMATION
  Report Type: 
  Country: None (occurrence: None)
  Receive Date: 20090324
  Receipt Date: 20090311
  Transmission Date: 20090719
  Serious: Yes (Hospitalization)
  Sender: FDA-Public Use
  Company Number: PAR_02890_2009

PATIENT
  Age: 19 Year
  Sex: Male
  Weight: 78 kg

DRUGS (7)
  1. IBUPROFEN [Suspect]
     Indication: MIGRAINE
     Dosage: (400 MG PRN ORAL)
     Route: 048
     Dates: end: 20081208
  2. RANITIDINE [Suspect]
     Indication: REFLUX OESOPHAGITIS
     Dosage: (150 MG QD ORAL)
     Route: 048
     Dates: start: 20010101, end: 20081210
  3. LAMOTRIGINE [Suspect]
     Indication: EPILEPSY
     Dosage: (200 MG ORAL)
     Route: 048
     Dates: start: 20081110, end: 20081210
  4. CIPROBAY /00697201/ (CIPROBAY - CIPROFLOXACIN) (NOT SPECIFIED) [Suspect]
     Indication: MYCOPLASMA INFECTION
     Dosage: (DF)
     Dates: start: 20081128, end: 20081207
  5. PANTOZOL /01263202/ (PANTOZOL - PANTOPRAZOLE) (NOT SPECIFIED) [Suspect]
     Indication: REFLUX OESOPHAGITIS
     Dosage: (20 MG ORAL)
     Route: 048
     Dates: start: 20010101, end: 20081210
  6. ERGENYL CHRONO (ERGENYL CHRONO - VALPROIC ACID) (NOT SPECIFIED) [Suspect]
     Indication: EPILEPSY
     Dosage: (500 MG QD, TAPERED SINCE 10-NOV-2008 ORAL), (TAPERED DOSE; DF; ORAL)
     Route: 048
     Dates: start: 20070501
  7. ERGENYL CHRONO (ERGENYL CHRONO - VALPROIC ACID) (NOT SPECIFIED) [Suspect]
     Indication: EPILEPSY
     Dosage: (500 MG QD, TAPERED SINCE 10-NOV-2008 ORAL), (TAPERED DOSE; DF; ORAL)
     Route: 048
     Dates: start: 20081110

REACTIONS (8)
  - ARTHRALGIA [None]
  - BLOOD SODIUM DECREASED [None]
  - HAEMOGLOBIN DECREASED [None]
  - MYCOPLASMA INFECTION [None]
  - OFF LABEL USE [None]
  - PLATELET COUNT DECREASED [None]
  - RASH [None]
  - TRANSAMINASES INCREASED [None]
